FAERS Safety Report 25850828 (Version 1)
Quarter: 2025Q3

REPORT INFORMATION
  Report Type: Report from Study
  Country: TH (occurrence: TH)
  Receive Date: 20250926
  Receipt Date: 20250926
  Transmission Date: 20251021
  Serious: Yes (Other)
  Sender: EMD SERONO INC
  Company Number: TH-Merck Healthcare KGaA-2025048323

PATIENT
  Sex: Male

DRUGS (1)
  1. SAIZEN [Suspect]
     Active Substance: SOMATROPIN
     Indication: Product used for unknown indication
     Dosage: 0.6 MG X 7 DAYS/WEEK
     Dates: start: 20250718, end: 202508

REACTIONS (5)
  - Syncope [Recovering/Resolving]
  - Nausea [Recovering/Resolving]
  - Diplopia [Recovering/Resolving]
  - Blood growth hormone increased [Unknown]
  - Headache [Recovering/Resolving]
